FAERS Safety Report 7522855-4 (Version None)
Quarter: 2011Q2

REPORT INFORMATION
  Report Type: 
  Country: None (occurrence: None)
  Receive Date: 20110603
  Receipt Date: 20110523
  Transmission Date: 20111010
  Serious: Yes (Hospitalization, Other)
  Sender: FDA-Public Use
  Company Number: HR-JNJFOC-20110511933

PATIENT
  Age: 44 Year
  Sex: Female

DRUGS (21)
  1. TAXILAN [Suspect]
     Dosage: 1,1,2 TABLETS
     Route: 048
  2. RISPERIDONE [Suspect]
     Dosage: IN THE EVENING
     Dates: start: 20011001
  3. RISPERDAL CONSTA [Suspect]
     Route: 030
     Dates: start: 20081001
  4. RISPERDAL CONSTA [Suspect]
     Route: 030
     Dates: start: 20070901, end: 20091001
  5. RISPERDAL CONSTA [Suspect]
     Route: 030
     Dates: start: 20091001
  6. AKINETON [Suspect]
     Indication: SCHIZOPHRENIA
     Dosage: IN THE MORNING
     Route: 048
     Dates: start: 20090101
  7. RISPERIDONE [Suspect]
     Indication: SCHIZOPHRENIA
     Dosage: 1,0,2 TABLETS
     Dates: start: 20021001
  8. TAXILAN [Suspect]
     Dosage: WHEN NEEDED
     Route: 048
     Dates: start: 20021001
  9. PROMAZINE HYDROCHLORIDE [Suspect]
     Indication: SCHIZOPHRENIA
     Route: 065
     Dates: start: 20090101
  10. DIAZEPAM [Suspect]
     Indication: SCHIZOPHRENIA
     Dosage: 1,1,1-2 TABLETS
     Route: 048
     Dates: start: 20090101
  11. BROMERGON [Concomitant]
     Dosage: IN THE MORNING
     Route: 048
     Dates: start: 20020101
  12. RISPERIDONE [Suspect]
  13. RISPERIDONE [Suspect]
     Dosage: IN THE EVENING
     Dates: start: 20021001
  14. HALDOL [Suspect]
     Indication: SCHIZOPHRENIA
     Route: 065
     Dates: start: 20090101
  15. MAPROTILINE HYDROCHLORIDE [Suspect]
     Indication: SCHIZOPHRENIA
     Dosage: IN THE EVENING
     Route: 048
     Dates: start: 20020101
  16. ALPRAZOLAM [Suspect]
     Indication: SCHIZOPHRENIA
     Dosage: 1-2 MG PER DAY
     Route: 048
     Dates: start: 20070101
  17. BROMERGON [Concomitant]
     Indication: GALACTORRHOEA
     Route: 048
     Dates: start: 20021001
  18. SANVAL [Concomitant]
     Indication: INSOMNIA
     Dosage: IN THE EVENING WHEN NEEDED
     Route: 048
     Dates: start: 20020101
  19. RISPERIDONE [Suspect]
     Dates: start: 20070101
  20. RISPERDAL CONSTA [Suspect]
     Indication: SCHIZOPHRENIA
     Route: 030
     Dates: start: 20110501
  21. TAXILAN [Suspect]
     Indication: SCHIZOPHRENIA
     Dosage: 50 MG+50 MG
     Route: 048
     Dates: start: 20011001

REACTIONS (15)
  - NIGHTMARE [None]
  - DYSPHORIA [None]
  - AMENORRHOEA [None]
  - HALLUCINATION, AUDITORY [None]
  - GALACTORRHOEA [None]
  - NEGATIVISM [None]
  - FEAR [None]
  - SOCIAL AVOIDANT BEHAVIOUR [None]
  - HYPERPROLACTINAEMIA [None]
  - ANXIETY [None]
  - MOOD ALTERED [None]
  - SCHIZOPHRENIA [None]
  - AGGRESSION [None]
  - PARANOIA [None]
  - TREATMENT NONCOMPLIANCE [None]
